FAERS Safety Report 5282241-7 (Version None)
Quarter: 2007Q1

REPORT INFORMATION
  Report Type: 
  Country: None (occurrence: None)
  Receive Date: 20070330
  Receipt Date: 20070320
  Transmission Date: 20070707
  Serious: Yes (Hospitalization, Other)
  Sender: FDA-Public Use
  Company Number: US-PFIZER INC-2007022483

PATIENT
  Sex: Male
  Weight: 89.8 kg

DRUGS (3)
  1. NORVASC [Suspect]
     Indication: HYPERTENSION
  2. FLOMAX [Concomitant]
  3. DITROPAN XL [Concomitant]

REACTIONS (4)
  - BLOOD CHLORIDE DECREASED [None]
  - BLOOD PRESSURE INADEQUATELY CONTROLLED [None]
  - BLOOD SODIUM DECREASED [None]
  - TRANSURETHRAL PROSTATECTOMY [None]
